FAERS Safety Report 5732832-1 (Version None)
Quarter: 2008Q2

REPORT INFORMATION
  Report Type: 
  Country: None (occurrence: None)
  Receive Date: 20080507
  Receipt Date: 20080507
  Transmission Date: 20081010
  Serious: Yes (Other)
  Sender: FDA-Public Use
  Company Number: None

PATIENT
  Age: 78 Year
  Sex: Female
  Weight: 55.7924 kg

DRUGS (1)
  1. LEVAQUIN [Suspect]
     Indication: PNEUMONIA
     Dosage: AS GENERALLY PRESCRIBED
     Dates: start: 20021222, end: 20030102

REACTIONS (5)
  - HAEMORRHAGE [None]
  - ODYNOPHAGIA [None]
  - OESOPHAGEAL DISORDER [None]
  - PEMPHIGOID [None]
  - PRURITUS [None]
